FAERS Safety Report 8566376 (Version 2)
Quarter: 2013Q3

REPORT INFORMATION
  Report Type: Report from Study
  Country: MX (occurrence: MX)
  Receive Date: 20120517
  Receipt Date: 20130814
  Transmission Date: 20140515
  Serious: Yes (Other)
  Sender: FDA-Public Use
  Company Number: PHHY2012MX040795

PATIENT
  Age: 38 Year
  Sex: Female

DRUGS (1)
  1. FORADIL [Suspect]
     Indication: ASTHMA
     Dosage: 1 DF, UNK
     Dates: start: 201203, end: 201204

REACTIONS (4)
  - Major depression [Recovering/Resolving]
  - Anxiety disorder [Recovering/Resolving]
  - Decreased appetite [Recovered/Resolved]
  - Tachycardia [Recovered/Resolved]
